FAERS Safety Report 15075051 (Version 2)
Quarter: 2023Q4

REPORT INFORMATION
  Report Type: Spontaneous
  Country: US (occurrence: US)
  Receive Date: 20180627
  Receipt Date: 20231109
  Transmission Date: 20240110
  Serious: Yes (Hospitalization, Other)
  Sender: FDA-Public Use
  Company Number: US-SAOL THERAPEUTICS-2017SAO01717

PATIENT
  Age: 53 Year
  Sex: Male

DRUGS (9)
  1. BACLOFEN [Suspect]
     Active Substance: BACLOFEN
     Indication: Pain
     Dosage: 72.07 ?G, \DAY
     Route: 037
  2. BACLOFEN [Suspect]
     Active Substance: BACLOFEN
     Indication: Failed back surgery syndrome
     Dosage: 0.94 ?G, \DAY
     Route: 037
     Dates: start: 20130523
  3. CLONIDINE [Suspect]
     Active Substance: CLONIDINE
     Dosage: 434.27 ?G, \DAY
     Route: 037
  4. MARCAINE [Suspect]
     Active Substance: BUPIVACAINE HYDROCHLORIDE
     Dosage: 4.3335 MG, \DAY
     Route: 037
  5. MARCAINE [Suspect]
     Active Substance: BUPIVACAINE HYDROCHLORIDE
     Dosage: 0.056 MG, \DAY
     Route: 037
     Dates: start: 20130523
  6. DILAUDID [Suspect]
     Active Substance: HYDROMORPHONE HYDROCHLORIDE
     Dosage: 13.001 MG, \DAY
     Route: 037
  7. DILAUDID [Suspect]
     Active Substance: HYDROMORPHONE HYDROCHLORIDE
     Dosage: 0.169 MG, \DAY
     Route: 037
  8. BACLOFEN [Suspect]
     Active Substance: BACLOFEN
     Route: 037
  9. CLONIDINE [Suspect]
     Active Substance: CLONIDINE
     Dosage: 5.66 ?G, \DAY
     Route: 037
     Dates: start: 20130523

REACTIONS (7)
  - Drug withdrawal syndrome [Recovered/Resolved]
  - Hyperhidrosis [Recovered/Resolved]
  - Pain [Recovered/Resolved]
  - Overdose [Unknown]
  - Device failure [Recovered/Resolved]
  - Complication associated with device [Recovered/Resolved]
  - Off label use [Unknown]

NARRATIVE: CASE EVENT DATE: 20130523
